FAERS Safety Report 24365226 (Version 1)
Quarter: 2024Q3

REPORT INFORMATION
  Report Type: Spontaneous
  Country: FR (occurrence: FR)
  Receive Date: 20240926
  Receipt Date: 20240926
  Transmission Date: 20241017
  Serious: Yes (Hospitalization, Other)
  Sender: AUROBINDO
  Company Number: FR-AFSSAPS-TS2024001023

PATIENT
  Age: 78 Year
  Sex: Female

DRUGS (5)
  1. CEFTRIAXONE [Suspect]
     Active Substance: CEFTRIAXONE
     Indication: Colitis
     Dosage: UNK UNK, ONCE A DAY
     Route: 042
     Dates: start: 20240806, end: 20240812
  2. METRONIDAZOLE [Suspect]
     Active Substance: METRONIDAZOLE
     Indication: Colitis
     Dosage: UNK UNK, ONCE A DAY
     Route: 042
     Dates: start: 20240806, end: 20240811
  3. PHLOROGLUCINOL [Suspect]
     Active Substance: PHLOROGLUCINOL
     Indication: Abdominal pain
     Dosage: UNK UNK, ONCE A DAY
     Route: 048
     Dates: start: 20240808, end: 20240812
  4. RACECADOTRIL [Suspect]
     Active Substance: RACECADOTRIL
     Indication: Diarrhoea
     Dosage: UNK UNK, ONCE A DAY
     Route: 048
     Dates: start: 20240806, end: 20240812
  5. IOBITRIDOL [Suspect]
     Active Substance: IOBITRIDOL
     Indication: Computerised tomogram
     Dosage: 1 DOSAGE FORM(1 TOTAL)
     Route: 042
     Dates: start: 20240806, end: 20240806

REACTIONS (1)
  - Acute generalised exanthematous pustulosis [Recovering/Resolving]

NARRATIVE: CASE EVENT DATE: 20240809
